FAERS Safety Report 14335641 (Version 2)
Quarter: 2018Q1

REPORT INFORMATION
  Report Type: Spontaneous
  Country: DE (occurrence: DE)
  Receive Date: 20171229
  Receipt Date: 20180104
  Transmission Date: 20180509
  Serious: Yes (Other)
  Sender: FDA-Public Use
  Company Number: DE-ORION CORPORATION ORION PHARMA-TREX2017-4232

PATIENT
  Age: 56 Year
  Sex: Male

DRUGS (4)
  1. DOXORUBICIN [Concomitant]
     Active Substance: DOXORUBICIN
     Route: 065
  2. CYTARABINE. [Suspect]
     Active Substance: CYTARABINE
     Indication: MYCOSIS FUNGOIDES
     Route: 065
  3. METHOTREXATE. [Suspect]
     Active Substance: METHOTREXATE
     Indication: MYCOSIS FUNGOIDES
     Dosage: LOW DOSE
     Route: 065
  4. METHOTREXATE. [Suspect]
     Active Substance: METHOTREXATE
     Dosage: HIGH DOSE
     Route: 042

REACTIONS (5)
  - Dermatitis [Unknown]
  - Febrile neutropenia [Unknown]
  - Drug intolerance [Unknown]
  - Neutropenic sepsis [Unknown]
  - Haematotoxicity [Unknown]
